FAERS Safety Report 6305000-2 (Version None)
Quarter: 2009Q3

REPORT INFORMATION
  Report Type: 
  Country: None (occurrence: None)
  Receive Date: 20090811
  Receipt Date: 20090729
  Transmission Date: 20100115
  Serious: Yes (Hospitalization)
  Sender: FDA-Public Use
  Company Number: IR-GENENTECH-288256

PATIENT
  Sex: Female

DRUGS (1)
  1. MABTHERA [Suspect]
     Indication: WEGENER'S GRANULOMATOSIS
     Dosage: 500 MG, 1/WEEK
     Route: 042
     Dates: start: 20090701, end: 20090701

REACTIONS (1)
  - APNOEA [None]
